FAERS Safety Report 12547573 (Version 2)
Quarter: 2016Q3

REPORT INFORMATION
  Report Type: Spontaneous
  Country: MX (occurrence: MX)
  Receive Date: 20160712
  Receipt Date: 20160721
  Transmission Date: 20161109
  Serious: Yes (Hospitalization, Other)
  Sender: FDA-Public Use
  Company Number: MX-BAXTER-2016BAX035471

PATIENT
  Age: 68 Year
  Sex: Female

DRUGS (1)
  1. TISSUCOL [Suspect]
     Active Substance: FIBRINOGEN HUMAN\THROMBIN HUMAN
     Indication: CRANIOTOMY
     Route: 065
     Dates: start: 20160621, end: 20160621

REACTIONS (4)
  - Seizure [Recovered/Resolved]
  - Pyrexia [Recovered/Resolved]
  - Cerebrospinal fluid leakage [Recovered/Resolved]
  - Expired product administered [Recovered/Resolved]

NARRATIVE: CASE EVENT DATE: 20160621
